FAERS Safety Report 4863726-1 (Version None)
Quarter: 2005Q4

REPORT INFORMATION
  Report Type: 
  Country: None (occurrence: None)
  Receive Date: 20051222
  Receipt Date: 20051118
  Transmission Date: 20060501
  Serious: No
  Sender: FDA-Public Use
  Company Number: US-GLAXOSMITHKLINE-A0582877A

PATIENT
  Age: 43 Year
  Sex: Female

DRUGS (3)
  1. FLOVENT [Suspect]
     Indication: ASTHMA
     Dosage: 44MCG AS REQUIRED
     Route: 055
     Dates: start: 20051116
  2. ALBUTEROL [Concomitant]
  3. FLOVENT [Concomitant]
     Route: 055

REACTIONS (4)
  - DRUG INEFFECTIVE [None]
  - DYSPNOEA [None]
  - PLEURITIC PAIN [None]
  - POOR QUALITY DRUG ADMINISTERED [None]
